FAERS Safety Report 4725508-0 (Version None)
Quarter: 2005Q3

REPORT INFORMATION
  Report Type: 
  Country: None (occurrence: None)
  Receive Date: 20050727
  Receipt Date: 20050715
  Transmission Date: 20060218
  Serious: Yes (Hospitalization, Other)
  Sender: FDA-Public Use
  Company Number: CH-JNJFOC-20050703945

PATIENT
  Age: 69 Year
  Sex: Male
  Weight: 60 kg

DRUGS (9)
  1. REOPRO [Suspect]
     Route: 042
  2. ENOXAPARIN SODIUM [Concomitant]
     Route: 058
  3. MOLSIDOMIN [Concomitant]
     Dosage: UNK DOSE, UNK FREQUENCY/DAY.
     Route: 048
  4. NITROGLYCERIN [Concomitant]
     Route: 051
  5. CLOPIDOGREL BISULFATE [Concomitant]
     Route: 048
  6. METOPROLOL [Concomitant]
  7. ASPIRIN TAB [Concomitant]
  8. SIMVASTATIN [Concomitant]
  9. MAGNESIUM [Concomitant]

REACTIONS (2)
  - INAPPROPRIATE ANTIDIURETIC HORMONE SECRETION [None]
  - THROMBOCYTOPENIA [None]
